FAERS Safety Report 8885585 (Version 1)
Quarter: 2012Q4

REPORT INFORMATION
  Report Type: Report from Study
  Country: GB (occurrence: GB)
  Receive Date: 20121102
  Receipt Date: 20121102
  Transmission Date: 20130627
  Serious: Yes (Other)
  Sender: FDA-Public Use
  Company Number: GB-AMGEN-GBRCT2012069675

PATIENT
  Age: 4 Year
  Sex: Male
  Weight: 12.3 kg

DRUGS (5)
  1. ETANERCEPT [Suspect]
     Indication: JUVENILE ARTHRITIS
     Dosage: 3 mg, 2 times/wk
     Route: 058
     Dates: start: 20120401
  2. ETANERCEPT [Suspect]
     Dosage: 5 mg, 2 times/wk
     Route: 058
     Dates: start: 20120501
  3. BECLOMETHASONE                     /00212602/ [Concomitant]
     Dosage: UNK
     Dates: start: 20120501
  4. HYDROCORTISONE [Concomitant]
     Dosage: 0.5% on face 1% on body (Cream)
     Route: 061
     Dates: start: 20120401
  5. HYDROCORTISONE [Concomitant]
     Dosage: 1 %, face and body (Ointment)
     Dates: start: 20120501

REACTIONS (1)
  - Rash [Recovering/Resolving]
